FAERS Safety Report 6704159-2 (Version None)
Quarter: 2010Q2

REPORT INFORMATION
  Report Type: 
  Country: None (occurrence: None)
  Receive Date: 20100430
  Receipt Date: 20100421
  Transmission Date: 20101027
  Serious: Yes (Hospitalization)
  Sender: FDA-Public Use
  Company Number: US-ALEXION-A201000369

PATIENT
  Sex: Male

DRUGS (2)
  1. SOLIRIS [Suspect]
     Indication: PAROXYSMAL NOCTURNAL HAEMOGLOBINURIA
     Dosage: UNK
  2. INSULIN [Concomitant]

REACTIONS (3)
  - BONE MARROW TRANSPLANT [None]
  - CATHETER CULTURE POSITIVE [None]
  - NEISSERIA INFECTION [None]
